FAERS Safety Report 21116910 (Version 2)
Quarter: 2022Q3

REPORT INFORMATION
  Report Type: Spontaneous
  Country: AU (occurrence: AU)
  Receive Date: 20220722
  Receipt Date: 20220804
  Transmission Date: 20221026
  Serious: Yes (Other)
  Sender: FDA-Public Use
  Company Number: AU-TEVA-2022-AU-2055601

PATIENT
  Age: 39 Year
  Sex: Male

DRUGS (6)
  1. DESVENLAFAXINE [Suspect]
     Active Substance: DESVENLAFAXINE
     Indication: Depression
     Dosage: DAILY
     Route: 065
  2. DESVENLAFAXINE [Suspect]
     Active Substance: DESVENLAFAXINE
     Dosage: 100 OR 150MG (ABUSE)
     Route: 065
  3. TRAMADOL [Suspect]
     Active Substance: TRAMADOL
     Indication: Pain
     Dosage: 2 DOSAGE FORMS DAILY; FORMULATION: SLOW RELEASE
     Route: 065
  4. TRAMADOL [Suspect]
     Active Substance: TRAMADOL
     Dosage: UP TO THREE TABLETS (ABUSE); FORMULATION: SLOW RELEASE
     Route: 065
  5. TRAMADOL [Suspect]
     Active Substance: TRAMADOL
     Dosage: ONE TO TWO TABLETS PRN UP TO THREE TIMES DAILY; FORMULATION: IMMEDIATE RELEASE
     Route: 065
  6. TRAMADOL [Suspect]
     Active Substance: TRAMADOL
     Dosage: UP TO EIGHT TABLETS (ABUSE); FORMULATION: IMMEDIATE RELEASE
     Route: 065

REACTIONS (2)
  - Acute psychosis [Recovered/Resolved]
  - Drug abuse [Recovered/Resolved]
